FAERS Safety Report 17068465 (Version 7)
Quarter: 2020Q1

REPORT INFORMATION
  Report Type: Spontaneous
  Country: US (occurrence: US)
  Receive Date: 20191123
  Receipt Date: 20200122
  Transmission Date: 20200409
  Serious: No
  Sender: FDA-Public Use
  Company Number: US-UNITED THERAPEUTICS-UNT-2019-019050

PATIENT
  Age: 67 Year
  Sex: Female
  Weight: 57.6 kg

DRUGS (11)
  1. ORENITRAM [Suspect]
     Active Substance: TREPROSTINIL
     Indication: PULMONARY ARTERIAL HYPERTENSION
     Dosage: UNK
     Route: 048
  2. ORENITRAM [Suspect]
     Active Substance: TREPROSTINIL
     Dosage: 1.125 MG, TID
     Route: 048
     Dates: start: 20191211
  3. ORENITRAM [Suspect]
     Active Substance: TREPROSTINIL
     Indication: PULMONARY ARTERIAL HYPERTENSION
     Dosage: UNK
     Route: 048
  4. SILDENAFIL CITRATE. [Concomitant]
     Active Substance: SILDENAFIL CITRATE
     Indication: PRODUCT USED FOR UNKNOWN INDICATION
     Dosage: UNK
     Route: 065
  5. ORENITRAM [Suspect]
     Active Substance: TREPROSTINIL
     Dosage: 0.375 MG, Q8H
     Route: 048
  6. ORENITRAM [Suspect]
     Active Substance: TREPROSTINIL
     Dosage: 1 MG, TID
     Route: 048
     Dates: start: 201912
  7. ORENITRAM [Suspect]
     Active Substance: TREPROSTINIL
     Indication: PULMONARY ARTERIAL HYPERTENSION
     Dosage: 0.125 MG, Q8H
     Route: 048
     Dates: start: 20191109
  8. ORENITRAM [Suspect]
     Active Substance: TREPROSTINIL
     Dosage: 0.25 MG, TID
     Route: 048
     Dates: start: 20191107
  9. ORENITRAM [Suspect]
     Active Substance: TREPROSTINIL
     Dosage: 0.75 MG, Q8H
     Route: 048
  10. ORENITRAM [Suspect]
     Active Substance: TREPROSTINIL
     Dosage: 0.875 MG, Q8H
     Route: 048
  11. ORENITRAM [Suspect]
     Active Substance: TREPROSTINIL
     Indication: PULMONARY ARTERIAL HYPERTENSION
     Dosage: UNK
     Route: 048

REACTIONS (7)
  - Diarrhoea [Not Recovered/Not Resolved]
  - Musculoskeletal pain [Unknown]
  - Headache [Not Recovered/Not Resolved]
  - Muscle spasms [Unknown]
  - Nausea [Unknown]
  - Product use issue [Unknown]
  - Fatigue [Unknown]

NARRATIVE: CASE EVENT DATE: 201911
